FAERS Safety Report 6878191-2 (Version None)
Quarter: 2010Q3

REPORT INFORMATION
  Report Type: 
  Country: None (occurrence: None)
  Receive Date: 20100728
  Receipt Date: 20100714
  Transmission Date: 20110219
  Serious: Yes (Other)
  Sender: FDA-Public Use
  Company Number: GB-PFIZER INC-2010087533

PATIENT
  Age: 42 Year
  Sex: Male

DRUGS (1)
  1. CHAMPIX [Suspect]
     Dosage: 0.5 MG, 1X/DAY
     Dates: end: 20100601

REACTIONS (4)
  - BLOOD CARBON MONOXIDE INCREASED [None]
  - HEADACHE [None]
  - MALAISE [None]
  - NAUSEA [None]
